FAERS Safety Report 5715040-X (Version None)
Quarter: 2008Q2

REPORT INFORMATION
  Report Type: 
  Country: None (occurrence: None)
  Receive Date: 20080423
  Receipt Date: 20080415
  Transmission Date: 20081010
  Serious: Yes (Hospitalization, Other)
  Sender: FDA-Public Use
  Company Number: US-GENENTECH-258352

PATIENT
  Sex: Female

DRUGS (3)
  1. RITUXAN [Suspect]
     Indication: SYSTEMIC LUPUS ERYTHEMATOSUS
     Dosage: 1 G, SINGLE
     Route: 042
     Dates: start: 20080313, end: 20080313
  2. CYTOXAN [Concomitant]
     Indication: DRUG USE FOR UNKNOWN INDICATION
  3. PREDNISONE [Concomitant]
     Indication: DRUG USE FOR UNKNOWN INDICATION

REACTIONS (3)
  - MOUTH ULCERATION [None]
  - SKIN EXFOLIATION [None]
  - SKIN ULCER [None]
